FAERS Safety Report 20544600 (Version 1)
Quarter: 2022Q1

REPORT INFORMATION
  Report Type: Report from Study
  Country: US (occurrence: US)
  Receive Date: 20220303
  Receipt Date: 20220303
  Transmission Date: 20220423
  Serious: Yes (Other)
  Sender: FDA-Public Use
  Company Number: US-TEVA-783331USA

PATIENT
  Age: 54 Year
  Sex: Female

DRUGS (3)
  1. AUSTEDO [Suspect]
     Active Substance: DEUTETRABENAZINE
     Indication: Huntington^s disease
     Dosage: 24 MILLIGRAM DAILY;
     Route: 065
     Dates: start: 20170620, end: 20170626
  2. AUSTEDO [Suspect]
     Active Substance: DEUTETRABENAZINE
     Dosage: 4 WEEK TITRATION
     Route: 065
     Dates: start: 20170616
  3. AUSTEDO [Suspect]
     Active Substance: DEUTETRABENAZINE
     Dosage: PERMANENT DISCONTINUATION
     Route: 065
     Dates: end: 20170718

REACTIONS (3)
  - Mental impairment [Unknown]
  - Depression [Recovering/Resolving]
  - Crying [Unknown]

NARRATIVE: CASE EVENT DATE: 20170101
